FAERS Safety Report 6483510-5 (Version None)
Quarter: 2009Q4

REPORT INFORMATION
  Report Type: 
  Country: None (occurrence: None)
  Receive Date: 20091208
  Receipt Date: 20091208
  Transmission Date: 20100525
  Serious: Yes (Hospitalization)
  Sender: FDA-Public Use
  Company Number: None

PATIENT
  Age: 62 Year
  Sex: Male
  Weight: 160 kg

DRUGS (2)
  1. INSULIN GLARGINE [Suspect]
     Indication: DIABETES MELLITUS
     Dosage: 30 UNITS AM SQ
     Route: 058
     Dates: start: 20081003, end: 20091130
  2. NPH INSULIN [Suspect]
     Indication: DIABETES MELLITUS
     Dosage: 70 UNITS EVERY DAY SQ
     Route: 058
     Dates: start: 20081003

REACTIONS (1)
  - HYPOKALAEMIA [None]
